FAERS Safety Report 7507940-5 (Version None)
Quarter: 2011Q2

REPORT INFORMATION
  Report Type: 
  Country: None (occurrence: None)
  Receive Date: 20110527
  Receipt Date: 20110512
  Transmission Date: 20111010
  Serious: Yes (Hospitalization)
  Sender: FDA-Public Use
  Company Number: JP-JNJFOC-20110506932

PATIENT
  Sex: Male
  Weight: 55 kg

DRUGS (9)
  1. REMICADE [Suspect]
     Indication: RHEUMATOID ARTHRITIS
     Dosage: 1 INFUSION ON AN UNKNOWN DATE
     Route: 042
  2. PREDNISOLONE [Concomitant]
     Indication: RHEUMATOID ARTHRITIS
     Route: 048
  3. FAMOTIDINE [Concomitant]
     Indication: RHEUMATOID ARTHRITIS
     Route: 048
  4. CELECOXIB [Concomitant]
     Indication: RHEUMATOID ARTHRITIS
     Route: 048
  5. METHOTREXATE [Suspect]
     Indication: RHEUMATOID ARTHRITIS
     Route: 048
     Dates: end: 20110423
  6. REMICADE [Suspect]
     Route: 042
     Dates: start: 20110411
  7. AMLODIPINE [Concomitant]
     Indication: HYPERTENSION
     Route: 048
  8. REMICADE [Suspect]
     Route: 042
     Dates: start: 20110301
  9. FOLIC ACID [Concomitant]
     Indication: RHEUMATOID ARTHRITIS
     Route: 048
     Dates: end: 20110424

REACTIONS (1)
  - PNEUMOCYSTIS JIROVECI PNEUMONIA [None]
